FAERS Safety Report 9675553 (Version 1)
Quarter: 2013Q4

REPORT INFORMATION
  Report Type: Spontaneous
  Country: US (occurrence: US)
  Receive Date: 20131107
  Receipt Date: 20131107
  Transmission Date: 20140711
  Serious: No
  Sender: FDA-Public Use
  Company Number: US-009507513-1310USA015362

PATIENT
  Age: 69 Year
  Sex: Female
  Weight: 81.63 kg

DRUGS (1)
  1. OXYTROL FOR WOMEN [Suspect]
     Indication: INCONTINENCE
     Dosage: 1 DF, Q4D
     Route: 062
     Dates: start: 201309, end: 20131015

REACTIONS (6)
  - Application site swelling [Not Recovered/Not Resolved]
  - Application site haemorrhage [Recovered/Resolved]
  - Application site pain [Recovered/Resolved]
  - Application site pruritus [Not Recovered/Not Resolved]
  - Application site erythema [Not Recovered/Not Resolved]
  - Product quality issue [Recovered/Resolved]
